FAERS Safety Report 9746530 (Version 1)
Quarter: 2013Q4

REPORT INFORMATION
  Report Type: Report from Study
  Country: AR (occurrence: AR)
  Receive Date: 20131211
  Receipt Date: 20131211
  Transmission Date: 20140711
  Serious: Yes (Other)
  Sender: FDA-Public Use
  Company Number: PHHY2013AR145059

PATIENT
  Sex: Male

DRUGS (1)
  1. DIOVAN D [Suspect]
     Indication: BLOOD PRESSURE ABNORMAL
     Dosage: 1 DF, DAILY
     Route: 048

REACTIONS (2)
  - Diabetes mellitus [Recovering/Resolving]
  - Blood cholesterol abnormal [Recovering/Resolving]
